FAERS Safety Report 7774544-9 (Version None)
Quarter: 2011Q3

REPORT INFORMATION
  Report Type: 
  Country: None (occurrence: None)
  Receive Date: 20110923
  Receipt Date: 20110923
  Transmission Date: 20111222
  Serious: Yes (Hospitalization)
  Sender: FDA-Public Use
  Company Number: None

PATIENT
  Age: 76 Year
  Sex: Male
  Weight: 59.2 kg

DRUGS (2)
  1. TEMSIROLIMUS [Suspect]
     Indication: HEPATIC NEOPLASM MALIGNANT
     Dosage: 7.5 MG
     Route: 042
     Dates: start: 20110822, end: 20110919
  2. SORAFENIB [Concomitant]
     Indication: HEPATIC NEOPLASM MALIGNANT
     Dosage: 200 MG
     Route: 048
     Dates: start: 20110906, end: 20110919

REACTIONS (4)
  - ORAL PAIN [None]
  - CHILLS [None]
  - TACHYCARDIA [None]
  - TOOTH ABSCESS [None]
